FAERS Safety Report 26049582 (Version 1)
Quarter: 2025Q4

REPORT INFORMATION
  Report Type: Spontaneous
  Country: US (occurrence: US)
  Receive Date: 20251115
  Receipt Date: 20251115
  Transmission Date: 20260118
  Serious: No
  Sender: ELI LILLY AND COMPANY
  Company Number: US-ELI_LILLY_AND_COMPANY-US202511016481

PATIENT
  Age: 60 Year
  Sex: Female

DRUGS (4)
  1. TIRZEPATIDE [Suspect]
     Active Substance: TIRZEPATIDE
     Indication: Type 2 diabetes mellitus
     Dosage: 5 MG, UNKNOWN
     Route: 065
  2. TIRZEPATIDE [Suspect]
     Active Substance: TIRZEPATIDE
     Indication: Type 2 diabetes mellitus
     Dosage: 5 MG, UNKNOWN
     Route: 065
  3. TIRZEPATIDE [Suspect]
     Active Substance: TIRZEPATIDE
     Dosage: 2.5 MG, UNKNOWN
     Route: 065
  4. TIRZEPATIDE [Suspect]
     Active Substance: TIRZEPATIDE
     Dosage: 2.5 MG, UNKNOWN
     Route: 065

REACTIONS (2)
  - Drug intolerance [Recovered/Resolved]
  - Weight decreased [Recovered/Resolved]
